FAERS Safety Report 21632558 (Version 1)
Quarter: 2022Q4

REPORT INFORMATION
  Report Type: Report from Study
  Country: US (occurrence: US)
  Receive Date: 20221123
  Receipt Date: 20221123
  Transmission Date: 20230113
  Serious: No
  Sender: FDA-Public Use
  Company Number: US-ABBVIE-22K-163-4373188-00

PATIENT
  Sex: Female

DRUGS (1)
  1. VENCLEXTA [Suspect]
     Active Substance: VENETOCLAX
     Indication: Lymphocytic leukaemia
     Route: 048
     Dates: start: 20211202

REACTIONS (5)
  - Anxiety [Unknown]
  - Pruritus [Unknown]
  - Rash [Unknown]
  - Erythema [Unknown]
  - Lymphadenopathy [Recovering/Resolving]
